FAERS Safety Report 24858275 (Version 1)
Quarter: 2025Q1

REPORT INFORMATION
  Report Type: Spontaneous
  Country: US (occurrence: None)
  Receive Date: 20250115
  Receipt Date: 20250115
  Transmission Date: 20250408
  Serious: No
  Sender: FDA-CTU
  Company Number: None

PATIENT

DRUGS (1)
  1. OCREVUS [Suspect]
     Active Substance: OCRELIZUMAB

REACTIONS (4)
  - Urticaria [None]
  - Hypoaesthesia [None]
  - Motor dysfunction [None]
  - Infusion related reaction [None]

NARRATIVE: CASE EVENT DATE: 20250114
